FAERS Safety Report 7880447-1 (Version None)
Quarter: 2011Q4

REPORT INFORMATION
  Report Type: 
  Country: None (occurrence: None)
  Receive Date: 20111101
  Receipt Date: 20111026
  Transmission Date: 20120403
  Serious: Yes (Death, Other)
  Sender: FDA-Public Use
  Company Number: PHHY2011US95862

PATIENT
  Age: 19 Year
  Sex: Female

DRUGS (2)
  1. RADIOTHERAPY [Concomitant]
  2. CYCLOSPORINE [Suspect]
     Indication: PROPHYLAXIS AGAINST GRAFT VERSUS HOST DISEASE

REACTIONS (4)
  - RHABDOMYOSARCOMA RECURRENT [None]
  - MUCOSAL INFLAMMATION [None]
  - CONCOMITANT DISEASE PROGRESSION [None]
  - SKIN TOXICITY [None]
